FAERS Safety Report 5117557-8 (Version None)
Quarter: 2006Q3

REPORT INFORMATION
  Report Type: 
  Country: None (occurrence: None)
  Receive Date: 20060929
  Receipt Date: 20060920
  Transmission Date: 20061208
  Serious: Yes (Other)
  Sender: FDA-Public Use
  Company Number: JP-JNJFOC-20060905413

PATIENT
  Age: 60 Year
  Sex: Female

DRUGS (4)
  1. REMICADE [Suspect]
     Route: 042
  2. REMICADE [Suspect]
     Route: 042
  3. REMICADE [Suspect]
     Indication: RHEUMATOID ARTHRITIS
     Route: 042
  4. METHOTREXATE [Suspect]
     Indication: RHEUMATOID ARTHRITIS
     Route: 048

REACTIONS (6)
  - ASCITES [None]
  - COUGH [None]
  - LABORATORY TEST ABNORMAL [None]
  - PLEURAL EFFUSION [None]
  - TUBERCULOSIS [None]
  - WEIGHT DECREASED [None]
